FAERS Safety Report 11817149 (Version 1)
Quarter: 2015Q4

REPORT INFORMATION
  Report Type: Spontaneous
  Country: US (occurrence: US)
  Receive Date: 20151210
  Receipt Date: 20151210
  Transmission Date: 20160305
  Serious: No
  Sender: FDA-Public Use
  Company Number: US-JNJFOC-20151122509

PATIENT
  Sex: Male

DRUGS (2)
  1. RISPERDAL [Suspect]
     Active Substance: RISPERIDONE
     Indication: BIPOLAR DISORDER
     Dosage: DRUG STARTED WHEN THE PATIENT WAS 8 YEARS OLD. DRUG WAS STOPPED LAST YEAR.
     Route: 048
  2. RISPERDAL [Suspect]
     Active Substance: RISPERIDONE
     Indication: DISSOCIATIVE IDENTITY DISORDER
     Dosage: DRUG STARTED WHEN THE PATIENT WAS 8 YEARS OLD. DRUG WAS STOPPED LAST YEAR.
     Route: 048

REACTIONS (3)
  - Crying [Unknown]
  - Depression [Unknown]
  - Gynaecomastia [Not Recovered/Not Resolved]
